FAERS Safety Report 5268814-6 (Version None)
Quarter: 2007Q1

REPORT INFORMATION
  Report Type: 
  Country: None (occurrence: None)
  Receive Date: 20061213
  Receipt Date: 20051130
  Transmission Date: 20070707
  Serious: No
  Sender: FDA-Public Use
  Company Number: 2005UW18112

PATIENT
  Age: 64 Year
  Sex: Female
  Weight: 81.646 kg

DRUGS (2)
  1. TAMOXIFEN CITRATE [Suspect]
     Indication: BREAST CANCER
     Dates: start: 20050501
  2. LOVASTATIN [Concomitant]

REACTIONS (1)
  - PULMONARY EMBOLISM [None]
